FAERS Safety Report 9046970 (Version 2)
Quarter: 2013Q1

REPORT INFORMATION
  Report Type: Spontaneous
  Country: GR (occurrence: GR)
  Receive Date: 20130204
  Receipt Date: 20130218
  Transmission Date: 20140127
  Serious: Yes (Other)
  Sender: FDA-Public Use
  Company Number: GR-ELI_LILLY_AND_COMPANY-GR201301005813

PATIENT
  Age: 22 Year
  Sex: Male

DRUGS (1)
  1. ZYPREXA [Suspect]
     Indication: MAJOR DEPRESSION
     Dosage: 1 DF, QD
     Dates: start: 201211, end: 201212

REACTIONS (2)
  - Hypoproteinaemia [Not Recovered/Not Resolved]
  - Generalised oedema [Not Recovered/Not Resolved]
